FAERS Safety Report 8168057-2 (Version None)
Quarter: 2012Q1

REPORT INFORMATION
  Report Type: 
  Country: None (occurrence: None)
  Receive Date: 20120227
  Receipt Date: 20120216
  Transmission Date: 20120608
  Serious: Yes (Other)
  Sender: FDA-Public Use
  Company Number: PHHY2012DE014035

PATIENT
  Age: 62 Year
  Sex: Male

DRUGS (4)
  1. RASILEZ [Suspect]
     Route: 048
  2. DOXAZOSIN [Concomitant]
  3. CALCIUM CHANNEL BLOCKERS [Concomitant]
  4. METFORMIN HCL [Concomitant]

REACTIONS (2)
  - HEPATIC STEATOSIS [None]
  - HEPATIC ENZYME INCREASED [None]
